FAERS Safety Report 16124760 (Version 1)
Quarter: 2019Q1

REPORT INFORMATION
  Report Type: Spontaneous
  Country: US (occurrence: US)
  Receive Date: 20190327
  Receipt Date: 20190327
  Transmission Date: 20190418
  Serious: Yes (Other)
  Sender: FDA-Public Use
  Company Number: US-INCYTE CORPORATION-2019IN002836

PATIENT

DRUGS (7)
  1. JAKAFI [Suspect]
     Active Substance: RUXOLITINIB
     Indication: CHRONIC MYELOID LEUKAEMIA
     Dosage: 20 MG, BID
     Route: 065
  2. JAKAFI [Interacting]
     Active Substance: RUXOLITINIB
     Dosage: 10 MG, BID
     Route: 065
  3. JAKAFI [Interacting]
     Active Substance: RUXOLITINIB
     Dosage: 20 MG, BID
     Route: 065
     Dates: end: 2018
  4. IMATINIB. [Interacting]
     Active Substance: IMATINIB MESYLATE
     Indication: CHRONIC MYELOID LEUKAEMIA
     Dosage: UNK
     Route: 065
  5. IMATINIB. [Interacting]
     Active Substance: IMATINIB MESYLATE
     Dosage: 400 MG, QD
     Route: 065
     Dates: start: 201801
  6. PEGYLATED INTERFERON ALFA-2A [Concomitant]
     Active Substance: PEGINTERFERON ALFA-2A
     Indication: CHRONIC MYELOID LEUKAEMIA
     Dosage: MAXIMAL DOSE OF 180 MCG, QW
     Route: 065
  7. JAKAFI [Interacting]
     Active Substance: RUXOLITINIB
     Dosage: 5 MG, BID
     Route: 065
     Dates: end: 2018

REACTIONS (7)
  - Pancytopenia [Unknown]
  - Fatigue [Unknown]
  - Drug interaction [Unknown]
  - Anaemia [Recovering/Resolving]
  - Product use in unapproved indication [Unknown]
  - Splenomegaly [Recovered/Resolved]
  - Haematocrit increased [Recovered/Resolved]

NARRATIVE: CASE EVENT DATE: 201712
